FAERS Safety Report 10039121 (Version 1)
Quarter: 2014Q1

REPORT INFORMATION
  Report Type: Spontaneous
  Country: IT (occurrence: IT)
  Receive Date: 20140326
  Receipt Date: 20140326
  Transmission Date: 20141002
  Serious: Yes (Other)
  Sender: FDA-Public Use
  Company Number: PHHY2014IT034762

PATIENT
  Age: 50 Year
  Sex: Female

DRUGS (8)
  1. CLOZAPINE [Suspect]
     Dosage: 25 MG, DAILY
  2. OLANZAPINE [Suspect]
     Dosage: 20 MG, DAILY
     Route: 048
  3. CARBOLITHIUM [Suspect]
     Dosage: 300 MG, DAILY
     Route: 048
  4. IMPROMEN [Suspect]
     Dosage: 1 POS.UNIT DAILY
     Route: 048
  5. LEXOTAN [Suspect]
     Dosage: 1 POS.UNIT DAILY
     Route: 048
  6. TALOFEN [Suspect]
     Dosage: 4 G/100 ML, 1 POS.UNIT DAILY
     Route: 048
  7. NOZINAN [Suspect]
     Dosage: 1 POS.UNIT DAILY
     Route: 048
  8. HALDOL [Suspect]

REACTIONS (3)
  - Coma [Unknown]
  - Leukocytosis [Unknown]
  - Hyperthermia [Unknown]
